FAERS Safety Report 5277968-7 (Version None)
Quarter: 2007Q1

REPORT INFORMATION
  Report Type: 
  Country: None (occurrence: None)
  Receive Date: 20070321
  Receipt Date: 20070314
  Transmission Date: 20070707
  Serious: Yes (Hospitalization, Other)
  Sender: FDA-Public Use
  Company Number: 154026USA

PATIENT
  Age: 18 Year
  Sex: Female

DRUGS (1)
  1. FUROSEMIDE [Suspect]
     Dosage: 120 MG (120 MG, 1 IN 1 D)

REACTIONS (10)
  - ALKALOSIS HYPOCHLORAEMIC [None]
  - ALKALOSIS HYPOKALAEMIC [None]
  - BLOOD ALDOSTERONE INCREASED [None]
  - BLOOD PRESSURE DECREASED [None]
  - DEPRESSED LEVEL OF CONSCIOUSNESS [None]
  - ENCEPHALOPATHY [None]
  - HEART RATE INCREASED [None]
  - HYPONATRAEMIA [None]
  - HYPOVOLAEMIA [None]
  - RESPIRATORY FAILURE [None]
